FAERS Safety Report 5467150-2 (Version None)
Quarter: 2007Q3

REPORT INFORMATION
  Report Type: 
  Country: None (occurrence: None)
  Receive Date: 20070925
  Receipt Date: 20070918
  Transmission Date: 20080115
  Serious: Yes (Other)
  Sender: FDA-Public Use
  Company Number: DE-ASTRAZENECA-2007PK01968

PATIENT
  Age: 67 Year
  Sex: Female

DRUGS (4)
  1. ENTOCORT EC [Suspect]
     Route: 048
     Dates: start: 20070225, end: 20070714
  2. ENTOCORT EC [Suspect]
     Route: 048
     Dates: start: 20070715, end: 20070715
  3. NEXIUM [Concomitant]
     Route: 048
  4. CONCOR [Concomitant]

REACTIONS (7)
  - ANGINA PECTORIS [None]
  - BLOOD PRESSURE INCREASED [None]
  - DIZZINESS [None]
  - HYPERTENSIVE CRISIS [None]
  - PALPITATIONS [None]
  - PERIPHERAL COLDNESS [None]
  - TREMOR [None]
